FAERS Safety Report 12675216 (Version 1)
Quarter: 2016Q3

REPORT INFORMATION
  Report Type: Spontaneous
  Country: US (occurrence: US)
  Receive Date: 20160823
  Receipt Date: 20160823
  Transmission Date: 20161109
  Serious: Yes (Other)
  Sender: FDA-Public Use
  Company Number: US-TEVA-686804USA

PATIENT
  Sex: Male
  Weight: 88.53 kg

DRUGS (1)
  1. ALPRAZOLAM. [Suspect]
     Active Substance: ALPRAZOLAM
     Indication: ANXIETY
     Dates: start: 2015

REACTIONS (10)
  - Drug withdrawal syndrome [Unknown]
  - Suicidal ideation [Unknown]
  - Feeling abnormal [Unknown]
  - Paranoia [Unknown]
  - Product substitution issue [Unknown]
  - Anxiety [Unknown]
  - Drug abuse [Unknown]
  - Drug ineffective [Unknown]
  - Panic attack [Unknown]
  - Drug tolerance increased [Unknown]
